FAERS Safety Report 8590828 (Version 3)
Quarter: 2013Q1

REPORT INFORMATION
  Report Type: Spontaneous
  Country: GB (occurrence: GB)
  Receive Date: 20120601
  Receipt Date: 20130206
  Transmission Date: 20140127
  Serious: Yes (Death, Hospitalization, Other)
  Sender: FDA-Public Use
  Company Number: GB-JNJFOC-20120520483

PATIENT
  Age: 66 None
  Sex: Female

DRUGS (2)
  1. REMICADE [Suspect]
     Indication: PSORIASIS
     Dosage: LAST INFUSION
     Route: 042
     Dates: start: 20120305, end: 20120305
  2. REMICADE [Suspect]
     Indication: PSORIASIS
     Dosage: 3 INFUSIONS
     Route: 042
     Dates: start: 20120123

REACTIONS (7)
  - Pulmonary embolism [Fatal]
  - Deep vein thrombosis [Fatal]
  - B-cell lymphoma [Fatal]
  - Nephropathy [Unknown]
  - Urinary tract infection [Unknown]
  - Lower respiratory tract infection [Unknown]
  - Blood potassium increased [Unknown]
